FAERS Safety Report 5167962-9 (Version None)
Quarter: 2006Q4

REPORT INFORMATION
  Report Type: 
  Country: None (occurrence: None)
  Receive Date: 20061208
  Receipt Date: 20051122
  Transmission Date: 20070319
  Serious: No
  Sender: FDA-Public Use
  Company Number: US-GLAXOSMITHKLINE-A0583440A

PATIENT
  Age: 47 Year
  Sex: Female

DRUGS (6)
  1. AVANDAMET [Suspect]
     Route: 048
  2. AVANDIA [Suspect]
     Route: 048
  3. METFORMIN [Suspect]
  4. ZOCOR [Concomitant]
  5. LISINOPRIL [Concomitant]
  6. NORTRIPTYLINE HCL [Concomitant]

REACTIONS (3)
  - DRUG INEFFECTIVE [None]
  - HAEMOGLOBIN ABNORMAL [None]
  - WEIGHT INCREASED [None]
